FAERS Safety Report 13700816 (Version 1)
Quarter: 2017Q2

REPORT INFORMATION
  Report Type: Spontaneous
  Country: US (occurrence: US)
  Receive Date: 20170628
  Receipt Date: 20170628
  Transmission Date: 20170830
  Serious: Yes (Hospitalization, Disabling)
  Sender: FDA-Public Use
  Company Number: None

PATIENT
  Age: 41 Year
  Sex: Female
  Weight: 72 kg

DRUGS (3)
  1. CLONAZEPAM 1MG [Suspect]
     Active Substance: CLONAZEPAM
     Indication: INSOMNIA
     Dates: start: 20071215, end: 20170430
  2. CLONAZEPAM 1MG [Suspect]
     Active Substance: CLONAZEPAM
     Indication: PANIC DISORDER
     Dates: start: 20071215, end: 20170430
  3. IBUPROFEN. [Concomitant]
     Active Substance: IBUPROFEN

REACTIONS (18)
  - Agoraphobia [None]
  - Memory impairment [None]
  - Panic attack [None]
  - Brain injury [None]
  - Depersonalisation/derealisation disorder [None]
  - Seizure [None]
  - Suicide attempt [None]
  - Impaired work ability [None]
  - Aphasia [None]
  - Restless legs syndrome [None]
  - Drug intolerance [None]
  - Mood swings [None]
  - Mania [None]
  - Withdrawal syndrome [None]
  - Derealisation [None]
  - Quality of life decreased [None]
  - Suicidal ideation [None]
  - Muscle spasms [None]

NARRATIVE: CASE EVENT DATE: 20080401
